FAERS Safety Report 7681255-7 (Version None)
Quarter: 2011Q3

REPORT INFORMATION
  Report Type: 
  Country: None (occurrence: None)
  Receive Date: 20110812
  Receipt Date: 20110518
  Transmission Date: 20111222
  Serious: Yes (Other)
  Sender: FDA-Public Use
  Company Number: PHHY2011JP42875

PATIENT
  Age: 80 Year
  Sex: Male

DRUGS (14)
  1. LASIX [Concomitant]
     Route: 048
  2. MUCOSTA [Concomitant]
     Dosage: 2 DF, UNK
     Route: 048
  3. METFORMIN HCL [Concomitant]
     Route: 048
  4. NEUROTROPIN [Concomitant]
  5. RASILEZ [Suspect]
     Indication: HYPERTENSION
     Dosage: UNK
     Route: 048
     Dates: start: 20110316, end: 20110427
  6. MIGLITOL [Concomitant]
     Route: 048
  7. ATELEC [Concomitant]
     Route: 048
  8. TAMSULOSIN HCL [Concomitant]
     Dosage: 1 DF, UNK
     Route: 048
  9. AMARYL [Concomitant]
     Route: 048
  10. KETOPROFEN [Concomitant]
     Route: 062
  11. FAMOTIDINE [Concomitant]
     Route: 048
  12. OPALMON [Concomitant]
     Route: 048
  13. MAGNESIUM OXIDE [Concomitant]
     Dosage: 3 DF, UNK
     Route: 048
  14. SERMION [Concomitant]
     Route: 048

REACTIONS (1)
  - HEPATIC FUNCTION ABNORMAL [None]
